FAERS Safety Report 7947168-8 (Version None)
Quarter: 2011Q4

REPORT INFORMATION
  Report Type: 
  Country: None (occurrence: None)
  Receive Date: 20111129
  Receipt Date: 20111121
  Transmission Date: 20120403
  Serious: Yes (Other)
  Sender: FDA-Public Use
  Company Number: US-AMGEN-USASP2011061537

PATIENT
  Age: 49 Year
  Sex: Female

DRUGS (2)
  1. ENBREL [Suspect]
     Indication: RHEUMATOID ARTHRITIS
     Dosage: 50 MG, UNK
  2. ENBREL [Suspect]
     Dosage: 25 MG, 2 TIMES/WK
     Dates: start: 20111118

REACTIONS (12)
  - ANXIETY [None]
  - ERYTHEMA [None]
  - FLATULENCE [None]
  - THROAT TIGHTNESS [None]
  - HEADACHE [None]
  - INJECTION SITE PRURITUS [None]
  - OESOPHAGEAL IRRITATION [None]
  - LIP SWELLING [None]
  - EYE PRURITUS [None]
  - NAUSEA [None]
  - THROAT IRRITATION [None]
  - PRURITUS GENERALISED [None]
